FAERS Safety Report 4693589-9 (Version None)
Quarter: 2005Q2

REPORT INFORMATION
  Report Type: 
  Country: None (occurrence: None)
  Receive Date: 20050615
  Receipt Date: 20050603
  Transmission Date: 20051028
  Serious: Yes (Other)
  Sender: FDA-Public Use
  Company Number: DEWYE665413MAY05

PATIENT
  Age: 44 Year
  Sex: Female

DRUGS (1)
  1. LEIOS (LEVONORGESTREL/ETHINYL ESTRADIOL, TABLET, 0) [Suspect]
     Indication: CONTRACEPTION
     Dosage: 1 TABLET
     Route: 048

REACTIONS (2)
  - PRURITUS [None]
  - URTICARIA [None]
